FAERS Safety Report 6237678-6 (Version None)
Quarter: 2009Q2

REPORT INFORMATION
  Report Type: 
  Country: None (occurrence: None)
  Receive Date: 20090617
  Receipt Date: 20090609
  Transmission Date: 20091009
  Serious: Yes (Hospitalization)
  Sender: FDA-Public Use
  Company Number: US-GDP-09406055

PATIENT
  Sex: Female
  Weight: 79.3795 kg

DRUGS (5)
  1. ORACEA [Suspect]
     Dosage: 1 DF QD ORAL
     Route: 048
     Dates: start: 20080915, end: 20081208
  2. WELLBUTRIN [Concomitant]
  3. TOPAMAXX [Concomitant]
  4. SYNTHROID [Concomitant]
  5. EFFEXOR [Concomitant]

REACTIONS (1)
  - MIGRAINE [None]
